FAERS Safety Report 4571788-4 (Version None)
Quarter: 2005Q1

REPORT INFORMATION
  Report Type: 
  Country: None (occurrence: None)
  Receive Date: 20050207
  Receipt Date: 20041217
  Transmission Date: 20050727
  Serious: No
  Sender: FDA-Public Use
  Company Number: US-MERCK-0412USA02184

PATIENT
  Age: 79 Year
  Sex: Female
  Weight: 58 kg

DRUGS (11)
  1. COREG [Suspect]
     Indication: VENTRICULAR DYSFUNCTION
     Route: 048
     Dates: start: 20030626
  2. COREG [Suspect]
     Route: 048
     Dates: end: 20041202
  3. COREG [Suspect]
     Route: 048
     Dates: start: 20041203
  4. MEVACOR [Suspect]
     Route: 048
     Dates: start: 20030626, end: 20040301
  5. CRESTOR [Suspect]
     Route: 048
     Dates: start: 20040721, end: 20041116
  6. ASPIRIN [Concomitant]
     Route: 065
  7. LASIX [Concomitant]
     Route: 065
  8. POTASSIUM CHLORIDE [Concomitant]
     Route: 065
  9. ALTACE [Concomitant]
     Route: 065
     Dates: start: 20030626, end: 20030901
  10. ALTACE [Concomitant]
     Route: 065
     Dates: start: 20040801, end: 20041201
  11. FOSINOPRIL SODIUM [Concomitant]
     Route: 065
     Dates: start: 20030901, end: 20040801

REACTIONS (15)
  - AGITATION [None]
  - AMNESIA [None]
  - BLADDER SPASM [None]
  - CARDIAC ANEURYSM [None]
  - DISTURBANCE IN ATTENTION [None]
  - DIZZINESS [None]
  - HYPERCHOLESTEROLAEMIA [None]
  - INSOMNIA [None]
  - MYALGIA [None]
  - NEUROPATHIC PAIN [None]
  - PAIN IN EXTREMITY [None]
  - PALPITATIONS [None]
  - PARAESTHESIA [None]
  - SENSORY DISTURBANCE [None]
  - URETHRAL SPASM [None]
